FAERS Safety Report 18905625 (Version 9)
Quarter: 2022Q1

REPORT INFORMATION
  Report Type: Report from Study
  Country: US (occurrence: US)
  Receive Date: 20210217
  Receipt Date: 20220319
  Transmission Date: 20220423
  Serious: Yes (Other)
  Sender: FDA-Public Use
  Company Number: NVSC2021US033968

PATIENT
  Sex: Female

DRUGS (5)
  1. ENTRESTO [Suspect]
     Active Substance: SACUBITRIL\VALSARTAN
     Indication: Cardiac failure
     Dosage: 50 MG, BID (24/26 MG), OTHER DOSAGE (24/26 MG), REDUCED DOSE 1/2 TAB IN AM AND PM
     Route: 048
     Dates: start: 20190707
  2. ENTRESTO [Suspect]
     Active Substance: SACUBITRIL\VALSARTAN
     Dosage: UNK (QD WHEN BP WAS LOW), QD
     Route: 048
  3. ENTRESTO [Suspect]
     Active Substance: SACUBITRIL\VALSARTAN
     Dosage: UNK (BACK TO BID ONCE FEELING OK AFTER A FEW DAYS)
     Route: 048
  4. ENTRESTO [Suspect]
     Active Substance: SACUBITRIL\VALSARTAN
     Dosage: 1 DF( HALF IN A.M AND FULL TABELT IN PM)
     Route: 065
  5. ENTRESTO [Suspect]
     Active Substance: SACUBITRIL\VALSARTAN
     Dosage: 1 DF( HALF IN A.M AND HALF TABELT IN PM)
     Route: 065

REACTIONS (7)
  - Myocardial infarction [Not Recovered/Not Resolved]
  - Illness [Unknown]
  - Hypotension [Recovering/Resolving]
  - Presyncope [Recovering/Resolving]
  - Blood pressure systolic decreased [Recovering/Resolving]
  - Fatigue [Not Recovered/Not Resolved]
  - Wrong technique in product usage process [Recovering/Resolving]
